FAERS Safety Report 6465076-9 (Version None)
Quarter: 2009Q4

REPORT INFORMATION
  Report Type: 
  Country: None (occurrence: None)
  Receive Date: 20091201
  Receipt Date: 20091119
  Transmission Date: 20100525
  Serious: Yes (Other)
  Sender: FDA-Public Use
  Company Number: JP-PFIZER INC-2009297786

PATIENT
  Age: 41 Year
  Sex: Male

DRUGS (1)
  1. GROWJECT [Suspect]
     Indication: HYPOPITUITARISM
     Dosage: UNK
     Dates: start: 20050101

REACTIONS (1)
  - GERM CELL CANCER [None]
